FAERS Safety Report 19684612 (Version 1)
Quarter: 2021Q3

REPORT INFORMATION
  Report Type: Spontaneous
  Country: BR (occurrence: BR)
  Receive Date: 20210811
  Receipt Date: 20210811
  Transmission Date: 20211014
  Serious: Yes (Death, Hospitalization, Other)
  Sender: FDA-Public Use
  Company Number: BR-STRIDES ARCOLAB LIMITED-2021SP026205

PATIENT
  Age: 22 Year
  Sex: Male

DRUGS (4)
  1. PREDNISOLONE. [Interacting]
     Active Substance: PREDNISOLONE
     Dosage: UNK, DOSE DECREASED
     Route: 065
  2. DEXAMETHASONE. [Interacting]
     Active Substance: DEXAMETHASONE
     Dosage: UNK, DOSE DECREASED
     Route: 065
  3. DEXAMETHASONE. [Interacting]
     Active Substance: DEXAMETHASONE
     Indication: T-CELL PROLYMPHOCYTIC LEUKAEMIA
     Dosage: UNK UNK, CYCLICAL HIGH DOSE, 10 CYCLES
     Route: 065
  4. PREDNISOLONE. [Suspect]
     Active Substance: PREDNISOLONE
     Indication: T-CELL PROLYMPHOCYTIC LEUKAEMIA
     Dosage: UNK UNK, CYCLICAL HIGH DOSE,10 CYCLES
     Route: 065

REACTIONS (4)
  - Septic shock [Fatal]
  - Potentiating drug interaction [Unknown]
  - Skin striae [Unknown]
  - Ulcer [Unknown]
